FAERS Safety Report 5285452-X (Version None)
Quarter: 2007Q1

REPORT INFORMATION
  Report Type: 
  Country: None (occurrence: None)
  Receive Date: 20070328
  Receipt Date: 20070314
  Transmission Date: 20070707
  Serious: Yes (Other)
  Sender: FDA-Public Use
  Company Number: US019278

PATIENT
  Age: 29 Year
  Sex: Female
  Weight: 65.318 kg

DRUGS (6)
  1. FENTANYL [Suspect]
     Indication: BREAKTHROUGH PAIN
     Dosage: 800 UG 800 UG PRN BUCCAL
     Route: 002
     Dates: start: 20060803, end: 20061102
  2. OXYCODONE HCL [Concomitant]
  3. FENTANYL [Concomitant]
  4. ZOLPIDEM [Concomitant]
  5. HYDROCODONE [Concomitant]
  6. NUVARING [Concomitant]

REACTIONS (4)
  - DRUG EXPOSURE BEFORE PREGNANCY [None]
  - DRUG EXPOSURE DURING PREGNANCY [None]
  - INTRA-UTERINE DEATH [None]
  - UNINTENDED PREGNANCY [None]
